FAERS Safety Report 9597090 (Version 1)
Quarter: 2013Q4

REPORT INFORMATION
  Report Type: Spontaneous
  Country: BR (occurrence: BR)
  Receive Date: 20131004
  Receipt Date: 20131004
  Transmission Date: 20140711
  Serious: Yes (Other)
  Sender: FDA-Public Use
  Company Number: BR-PFIZER INC-2013281871

PATIENT
  Age: 56 Year
  Sex: Female

DRUGS (1)
  1. CELEBRA [Suspect]
     Dosage: 1 CAPSULE OF 200 MG, 1X/DAY
     Route: 048
     Dates: start: 2009

REACTIONS (2)
  - Joint injury [Unknown]
  - Joint injury [Unknown]
